FAERS Safety Report 12318851 (Version 2)
Quarter: 2016Q2

REPORT INFORMATION
  Report Type: Spontaneous
  Country: NO (occurrence: NO)
  Receive Date: 20160429
  Receipt Date: 20160504
  Transmission Date: 20160815
  Serious: Yes (Death)
  Sender: FDA-Public Use
  Company Number: NO-TEVA-656061GER

PATIENT
  Age: 28 Year
  Sex: Male

DRUGS (6)
  1. PARACETAMOL [Suspect]
     Active Substance: ACETAMINOPHEN
     Route: 065
  2. AMPHETAMINE [Suspect]
     Active Substance: AMPHETAMINE
     Route: 065
  3. MEPROBAMATE. [Suspect]
     Active Substance: MEPROBAMATE
     Route: 065
  4. IBUPROFEN. [Suspect]
     Active Substance: IBUPROFEN
     Route: 065
  5. CODEINE [Suspect]
     Active Substance: CODEINE
     Route: 065
  6. CARISOPRODOL. [Suspect]
     Active Substance: CARISOPRODOL
     Route: 065

REACTIONS (1)
  - Toxicity to various agents [Fatal]
